FAERS Safety Report 25031759 (Version 1)
Quarter: 2025Q1

REPORT INFORMATION
  Report Type: Spontaneous
  Country: US (occurrence: None)
  Receive Date: 20250302
  Receipt Date: 20250302
  Transmission Date: 20250408
  Serious: Yes (Life-Threatening, Hospitalization)
  Sender: FDA-CTU
  Company Number: None

PATIENT
  Age: 22 Year
  Sex: Female
  Weight: 54 kg

DRUGS (5)
  1. HYOSCYAMINE [Suspect]
     Active Substance: HYOSCYAMINE
     Indication: Vomiting
     Dates: start: 20250227, end: 20250227
  2. MICRONOR [Concomitant]
     Active Substance: NORETHINDRONE
  3. DELTASONE [Concomitant]
     Active Substance: PREDNISONE
  4. COMPAZINE [Concomitant]
     Active Substance: PROCHLORPERAZINE MALEATE
  5. PHENERGAN [Concomitant]
     Active Substance: PROMETHAZINE HYDROCHLORIDE

REACTIONS (12)
  - Neck pain [None]
  - Tongue dry [None]
  - Vision blurred [None]
  - Fatigue [None]
  - Dizziness [None]
  - Heart rate increased [None]
  - Swollen tongue [None]
  - Dyspnoea [None]
  - Exophthalmos [None]
  - Facial paralysis [None]
  - Cerebrovascular accident [None]
  - Loss of consciousness [None]

NARRATIVE: CASE EVENT DATE: 20250227
